FAERS Safety Report 20074143 (Version 1)
Quarter: 2021Q4

REPORT INFORMATION
  Report Type: Spontaneous
  Country: US (occurrence: None)
  Receive Date: 20211113
  Receipt Date: 20211113
  Transmission Date: 20220303
  Serious: No
  Sender: FDA-Public Use
  Company Number: None

PATIENT
  Age: 41 Year
  Sex: Male

DRUGS (1)
  1. REGEN-COV [Suspect]
     Active Substance: CASIRIVIMAB\IMDEVIMAB
     Indication: COVID-19
     Dosage: OTHER QUANTITY : 600/10 MG/ML;?FREQUENCY : ONCE;?
     Route: 042

REACTIONS (2)
  - Chest pain [None]
  - Neck pain [None]

NARRATIVE: CASE EVENT DATE: 20211110
